FAERS Safety Report 15639544 (Version 4)
Quarter: 2020Q3

REPORT INFORMATION
  Report Type: Spontaneous
  Country: SI (occurrence: SI)
  Receive Date: 20181120
  Receipt Date: 20200702
  Transmission Date: 20201102
  Serious: Yes (Death, Other)
  Sender: FDA-Public Use
  Company Number: SI-BAYER-2018-211288

PATIENT
  Sex: Male

DRUGS (9)
  1. SERTRALINE [Concomitant]
     Active Substance: SERTRALINE HYDROCHLORIDE
     Dosage: UNK
  2. STIVARGA [Suspect]
     Active Substance: REGORAFENIB
     Indication: HEPATOCELLULAR CARCINOMA
     Dosage: DAILY DOSE 160 MG FOR 21 DAYS, FOLLOWED BY A 7 DAY BREAK
     Dates: start: 201703, end: 2017
  3. STIVARGA [Suspect]
     Active Substance: REGORAFENIB
     Indication: HEPATOCELLULAR CARCINOMA
     Dosage: DAILY DOSE 80 MG
     Dates: start: 201707, end: 201907
  4. NEXAVAR [Suspect]
     Active Substance: SORAFENIB
     Indication: HEPATOCELLULAR CARCINOMA
     Dosage: 400 MG, BID
     Route: 048
     Dates: end: 201703
  5. LISINOPRIL. [Concomitant]
     Active Substance: LISINOPRIL
  6. NEXAVAR [Suspect]
     Active Substance: SORAFENIB
     Indication: HEPATOCELLULAR CARCINOMA
     Dosage: 200 MG, BID
     Route: 048
     Dates: start: 201603, end: 201703
  7. STIVARGA [Suspect]
     Active Substance: REGORAFENIB
     Indication: HEPATOCELLULAR CARCINOMA
     Dosage: DAILY DOSE 120 MG
     Dates: start: 2017, end: 2017
  8. SIMVASTATIN. [Concomitant]
     Active Substance: SIMVASTATIN
  9. ACETYLSALICYLIC ACID [Concomitant]
     Active Substance: ASPIRIN
     Dosage: UNK

REACTIONS (16)
  - Blood pressure increased [Recovering/Resolving]
  - Diarrhoea [None]
  - Hepatocellular carcinoma [None]
  - Skin ulcer [Recovering/Resolving]
  - Pneumonia [Fatal]
  - Portal hypertension [None]
  - Hepatic cirrhosis [None]
  - Hepatic cirrhosis [None]
  - Palmar-plantar erythrodysaesthesia syndrome [Recovering/Resolving]
  - Hepatic lesion [None]
  - Diarrhoea [Recovered/Resolved]
  - Hepatic function abnormal [None]
  - Renal failure [Recovered/Resolved]
  - Off label use [None]
  - Ascites [None]
  - General physical health deterioration [None]

NARRATIVE: CASE EVENT DATE: 201607
